FAERS Safety Report 11329610 (Version 1)
Quarter: 2015Q3

REPORT INFORMATION
  Report Type: Spontaneous
  Country: US (occurrence: None)
  Receive Date: 20150730
  Receipt Date: 20150730
  Transmission Date: 20151125
  Serious: Yes (Hospitalization)
  Sender: FDA-Public Use
  Company Number: None

PATIENT
  Age: 68 Year
  Sex: Female

DRUGS (11)
  1. HEPARIN [Concomitant]
     Active Substance: HEPARIN SODIUM
  2. METRONIDAZOLE. [Concomitant]
     Active Substance: METRONIDAZOLE
  3. LIDOCAINE. [Concomitant]
     Active Substance: LIDOCAINE
  4. PANTOPRAZOLE [Concomitant]
     Active Substance: PANTOPRAZOLE SODIUM
  5. PROMETHAZINE [Suspect]
     Active Substance: PROMETHAZINE\PROMETHAZINE HYDROCHLORIDE
     Route: 042
  6. MAGNESIUM SULFATE. [Concomitant]
     Active Substance: MAGNESIUM SULFATE
  7. METOPROLOL [Concomitant]
     Active Substance: METOPROLOL
  8. POTASSIUM CHLORIDE. [Concomitant]
     Active Substance: POTASSIUM CHLORIDE
     Indication: NAUSEA
  9. FLUTICASONE [Concomitant]
     Active Substance: FLUTICASONE\FLUTICASONE PROPIONATE
  10. INSULIN ASPART [Concomitant]
     Active Substance: INSULIN ASPART
  11. PROCHLORPERAZINE. [Suspect]
     Active Substance: PROCHLORPERAZINE
     Indication: NAUSEA
     Route: 042
     Dates: start: 20141209, end: 20150114

REACTIONS (9)
  - Autonomic nervous system imbalance [None]
  - Muscle rigidity [None]
  - Tachycardia [None]
  - Blood pressure increased [None]
  - Labile blood pressure [None]
  - Withdrawal syndrome [None]
  - Tremor [None]
  - Cogwheel rigidity [None]
  - Clonus [None]

NARRATIVE: CASE EVENT DATE: 20150114
